FAERS Safety Report 10050970 (Version 2)
Quarter: 2014Q2

REPORT INFORMATION
  Report Type: Spontaneous
  Country: US (occurrence: None)
  Receive Date: 20140328
  Receipt Date: 20140520
  Transmission Date: 20141212
  Serious: Yes (Hospitalization, Other)
  Sender: FDA-Public Use
  Company Number: SYM-2014-19040

PATIENT
  Age: 54 Year
  Sex: Female
  Weight: 62 kg

DRUGS (22)
  1. XENAZINE [Suspect]
     Indication: HUNTINGTON^S DISEASE
     Dosage: 50MG, 4 IN 1 D, ORAL
     Route: 048
     Dates: start: 20130509
  2. PROMETHAZINE (12.5 MILLIGRAM, TABELT) (PROMETHAZINE) [Concomitant]
  3. BACLOFEN (10 MILLIGRAM, TABLET) (BACLOFEN) [Concomitant]
  4. VALPROATE SEMISODIUM (500 MILLIGRAM, TABLET) (VALPROATE SEMISODIUM) [Concomitant]
  5. GABAPENTIN (100 MILLIGRAM, CAPSULE) (GABAPENTIN) [Concomitant]
  6. LEVETIRACETAM (500 MILLIGRAM, TABLET) (LEVETIRACETAM) [Concomitant]
  7. NICOTINE (TRANSDERMAL PATCH) (NICOTIINE) [Concomitant]
  8. OXYBUTYNIN (5 MILLIGRAM, TABLET) (OXYBUTYNIN) [Concomitant]
  9. SERTRALINE HYDROCHLORIDE (25 MILLIGRAM, TABLET) (SERTRALINE HYDROCHLORIDE) [Concomitant]
  10. SYNTHROID (LEVOTHYROXINE SODIUM) (LEVOTHYROXINE [Concomitant]
  11. ACEPHEN (MECLOFENOXATE HYDROCHLORIDE) (650 MILLIGRAM, SUPPOSITORY) (MECLOFENOXATE HYDROCHLORIDE) [Concomitant]
  12. BISACODYL (10 MILLIGRAM, SUPPOSITORY) (BISACODYL) [Concomitant]
  13. DEEP SEA PREMIUM SALINE (SODIUM CHLORIDE) (0.65 PERCENT, NASAL SPRAY) (SODIUM CHLORIDE) [Concomitant]
  14. GEODON (ZIPRASIDONE HYDROCHLORIDE) (20 MILLIGRAM/MILLILITERS, INJECTION) (ZIPRASIDONE HYDROCHLORIDE) [Concomitant]
  15. LACTULOSE (SOLUTION) (LACTULOSE) [Concomitant]
  16. LOPERAMIDE (2 MILLIGRAM, CAPSULE) (LOPERAMIDE) [Concomitant]
  17. PARACETAMOL (325 MILLIGRAM, TABLET) (PARACETAMOL) [Concomitant]
  18. MAGNESIUM HYDROXIDE (SUSPENSION) (MAGNESIUM HYDROXIDE) [Concomitant]
  19. PROMETHEGAN (PROMETHAZINE HYDROCHLORIDE) (12.5 MILLIGRAM, SUPPOSITORY) (PROMETHAZINE HYDROCHLORIDE) [Concomitant]
  20. RISPERIDONE [Concomitant]
  21. ZOLPIDEM TARTRATE (5 MILLIGRAM, TABLET) (ZOLPIDEM TARTRATE) [Concomitant]
  22. VICODIN (PARACETAMOL, HYDROCODONE BITARTRATE) [Concomitant]

REACTIONS (9)
  - Subcutaneous emphysema [None]
  - Pneumothorax [None]
  - Aspiration [None]
  - Orbital oedema [None]
  - Investigation [None]
  - Hypersensitivity [None]
  - Pneumomediastinum [None]
  - Sepsis [None]
  - Conjunctivitis [None]
